FAERS Safety Report 13766800 (Version 1)
Quarter: 2017Q3

REPORT INFORMATION
  Report Type: Spontaneous
  Country: US (occurrence: US)
  Receive Date: 20170718
  Receipt Date: 20170718
  Transmission Date: 20171127
  Serious: Yes (Disabling)
  Sender: FDA-Public Use
  Company Number: None

PATIENT
  Age: 53 Year
  Sex: Female
  Weight: 58.5 kg

DRUGS (9)
  1. CITRICAL [Concomitant]
     Active Substance: CALCIUM CITRATE
  2. CIPROFLOXACIN. [Suspect]
     Active Substance: CIPROFLOXACIN
     Indication: URINARY TRACT INFECTION
     Dosage: ?          OTHER STRENGTH:MG;QUANTITY:6 TABLET(S);?
     Route: 048
     Dates: start: 20160804, end: 20160806
  3. LEVOTHYROXIN [Concomitant]
     Active Substance: LEVOTHYROXINE
  4. OMEGA 3 [Concomitant]
     Active Substance: OMEGA-3 FATTY ACIDS
  5. CENTRUM SILVER [Concomitant]
     Active Substance: MINERALS\VITAMINS
  6. VITAMIN D [Concomitant]
     Active Substance: CHOLECALCIFEROL
  7. VITAMIN B12 [Concomitant]
     Active Substance: CYANOCOBALAMIN
  8. COQ 10 [Concomitant]
     Active Substance: UBIDECARENONE
  9. PROBIOTIC [Concomitant]
     Active Substance: PROBIOTICS NOS

REACTIONS (15)
  - Tendonitis [None]
  - Change of bowel habit [None]
  - Vitreous floaters [None]
  - Vision blurred [None]
  - Loss of employment [None]
  - Musculoskeletal disorder [None]
  - Loss of personal independence in daily activities [None]
  - Tendon disorder [None]
  - Abdominal pain [None]
  - Neuropathy peripheral [None]
  - Tendon rupture [None]
  - Gait disturbance [None]
  - Insomnia [None]
  - Dysstasia [None]
  - Hydronephrosis [None]

NARRATIVE: CASE EVENT DATE: 20160806
